FAERS Safety Report 5689411-4 (Version None)
Quarter: 2008Q1

REPORT INFORMATION
  Report Type: 
  Country: None (occurrence: None)
  Receive Date: 20080331
  Receipt Date: 20080319
  Transmission Date: 20080703
  Serious: Yes (Death)
  Sender: FDA-Public Use
  Company Number: CA-AMGEN-KDL270387

PATIENT
  Sex: Female

DRUGS (3)
  1. ENBREL [Suspect]
     Indication: RHEUMATOID ARTHRITIS
     Route: 058
     Dates: start: 20071007, end: 20080315
  2. PREDNISONE [Concomitant]
  3. VIOXX [Concomitant]

REACTIONS (1)
  - DEATH [None]
